FAERS Safety Report 5197999-5 (Version None)
Quarter: 2007Q1

REPORT INFORMATION
  Report Type: 
  Country: None (occurrence: None)
  Receive Date: 20070104
  Receipt Date: 20061229
  Transmission Date: 20070707
  Serious: Yes (Other)
  Sender: FDA-Public Use
  Company Number: ES-AVENTIS-200623058GDDC

PATIENT
  Age: 5 Year
  Sex: Male

DRUGS (2)
  1. MINURIN                            /00361901/ [Suspect]
     Indication: ENURESIS
     Route: 048
     Dates: start: 20061127, end: 20061209
  2. MINURIN                            /00361901/ [Suspect]
     Route: 048
     Dates: start: 20061218

REACTIONS (1)
  - TREMOR [None]
